FAERS Safety Report 6685315-9 (Version None)
Quarter: 2010Q2

REPORT INFORMATION
  Report Type: 
  Country: None (occurrence: None)
  Receive Date: 20100416
  Receipt Date: 20100405
  Transmission Date: 20101027
  Serious: Yes (Other)
  Sender: FDA-Public Use
  Company Number: US-AMGEN-US340172

PATIENT
  Sex: Female
  Weight: 61 kg

DRUGS (1)
  1. NPLATE [Suspect]
     Indication: IDIOPATHIC THROMBOCYTOPENIC PURPURA
     Dates: start: 20080624, end: 20100310

REACTIONS (4)
  - DRUG INEFFECTIVE [None]
  - THERAPEUTIC RESPONSE DECREASED [None]
  - THROMBOCYTOPENIA [None]
  - TREATMENT NONCOMPLIANCE [None]
